FAERS Safety Report 24975735 (Version 1)
Quarter: 2025Q1

REPORT INFORMATION
  Report Type: Spontaneous
  Country: US (occurrence: US)
  Receive Date: 20250217
  Receipt Date: 20250217
  Transmission Date: 20250408
  Serious: Yes (Hospitalization, Other)
  Sender: NOVO NORDISK
  Company Number: US-NOVOPROD-1368714

PATIENT
  Sex: Female

DRUGS (3)
  1. NOVOLIN R [Suspect]
     Active Substance: INSULIN HUMAN
     Indication: Type 2 diabetes mellitus
     Route: 058
     Dates: end: 202401
  2. LANTUS [Concomitant]
     Active Substance: INSULIN GLARGINE
     Indication: Type 2 diabetes mellitus
     Route: 058
  3. METFORMIN [Concomitant]
     Active Substance: METFORMIN HYDROCHLORIDE
     Indication: Type 2 diabetes mellitus

REACTIONS (5)
  - Loss of consciousness [Unknown]
  - Loss of consciousness [Unknown]
  - Renal failure [Unknown]
  - Hepatic failure [Unknown]
  - Overdose [Unknown]

NARRATIVE: CASE EVENT DATE: 20240101
